FAERS Safety Report 5518248-1 (Version None)
Quarter: 2007Q4

REPORT INFORMATION
  Report Type: 
  Country: None (occurrence: None)
  Receive Date: 20071115
  Receipt Date: 20071109
  Transmission Date: 20080405
  Serious: Yes (Other)
  Sender: FDA-Public Use
  Company Number: A0693592A

PATIENT
  Age: 67 Year
  Sex: Male

DRUGS (3)
  1. ADVAIR DISKUS 100/50 [Suspect]
     Indication: ASTHMA
     Dosage: 1PUFF TWICE PER DAY
     Route: 055
     Dates: start: 20010101, end: 20040101
  2. METHOTREXATE [Concomitant]
  3. IMURAN [Concomitant]

REACTIONS (4)
  - MULTIPLE MYELOMA [None]
  - POOR QUALITY SLEEP [None]
  - VISUAL DISTURBANCE [None]
  - VISUAL FIELD DEFECT [None]
